FAERS Safety Report 6822370-7 (Version None)
Quarter: 2010Q3

REPORT INFORMATION
  Report Type: 
  Country: None (occurrence: None)
  Receive Date: 20100707
  Receipt Date: 20100707
  Transmission Date: 20110219
  Serious: Yes (Other)
  Sender: FDA-Public Use
  Company Number: None

PATIENT
  Age: 62 Year
  Sex: Male
  Weight: 86.1834 kg

DRUGS (1)
  1. CIPROFLOXACAN 500 MG [Suspect]
     Indication: DIARRHOEA
     Dosage: 500 MG 2X DAILY PO
     Route: 048
     Dates: start: 20100331, end: 20100407

REACTIONS (3)
  - DIARRHOEA [None]
  - PAIN IN EXTREMITY [None]
  - TENDONITIS [None]
